FAERS Safety Report 4330936-1 (Version None)
Quarter: 2004Q1

REPORT INFORMATION
  Report Type: 
  Country: None (occurrence: None)
  Receive Date: 20040330
  Receipt Date: 20040319
  Transmission Date: 20041129
  Serious: Yes (Death)
  Sender: FDA-Public Use
  Company Number: JP-SHR-04-022102

PATIENT
  Age: 59 Year
  Sex: Female

DRUGS (4)
  1. PROSCOPE 300 (IOPROMIDE) INFUSION [Suspect]
     Indication: COMPUTERISED TOMOGRAM
     Dosage: 100 ML 1 DOSE, INTRAVENOUS
     Route: 042
     Dates: start: 20040225, end: 20040225
  2. RANDA [Concomitant]
  3. PACLITAXEL [Concomitant]
  4. HEPARIN [Concomitant]

REACTIONS (6)
  - CARDIO-RESPIRATORY ARREST [None]
  - CONDITION AGGRAVATED [None]
  - CONVULSION [None]
  - HAEMOPNEUMOTHORAX [None]
  - PULMONARY INFARCTION [None]
  - SHOCK HAEMORRHAGIC [None]
